FAERS Safety Report 5166990-7 (Version None)
Quarter: 2006Q4

REPORT INFORMATION
  Report Type: 
  Country: None (occurrence: None)
  Receive Date: 20061129
  Receipt Date: 20061116
  Transmission Date: 20070319
  Serious: Yes (Hospitalization)
  Sender: FDA-Public Use
  Company Number: 2006142198

PATIENT
  Age: 73 Year
  Sex: Male
  Weight: 51 kg

DRUGS (6)
  1. PREDNISOLONE [Suspect]
     Indication: RHEUMATOID ARTHRITIS
     Dosage: 10 MG (10 MG, 1 IN 1 D)
  2. ENBREL [Suspect]
     Indication: RHEUMATOID ARTHRITIS
     Dosage: 50 MG (50 MG, 1 IN 1 WK), SUBCUTANEOUS
     Route: 058
     Dates: start: 20060111, end: 20060502
  3. PREDNISOLONE [Suspect]
     Indication: RHEUMATOID ARTHRITIS
     Dosage: 3 MG (3 MG, 1 IN 1 D)
  4. PROGRAF [Suspect]
     Indication: RHEUMATOID ARTHRITIS
     Dosage: 2 MG (2 MG, 1 IN 1 D), ORAL
     Route: 048
     Dates: start: 20051214, end: 20060601
  5. RABEPRAZOLE SODIUM [Concomitant]
  6. ISONIAZID [Concomitant]

REACTIONS (1)
  - PNEUMONIA PNEUMOCOCCAL [None]
